FAERS Safety Report 6337177-7 (Version None)
Quarter: 2009Q3

REPORT INFORMATION
  Report Type: 
  Country: None (occurrence: None)
  Receive Date: 20090831
  Receipt Date: 20090826
  Transmission Date: 20100115
  Serious: Yes (Hospitalization)
  Sender: FDA-Public Use
  Company Number: 09GB003347

PATIENT
  Age: 76 Year
  Sex: Female

DRUGS (3)
  1. NAPROXEN SODIUM [Suspect]
     Indication: PAIN
     Dosage: 250 MG, BID, ORAL; 500 MG, BID, ORAL
     Route: 048
     Dates: end: 20090730
  2. NAPROXEN SODIUM [Suspect]
     Indication: PAIN
     Dosage: 250 MG, BID, ORAL; 500 MG, BID, ORAL
     Route: 048
     Dates: start: 20090731, end: 20090812
  3. ALENDRONIC ACID (ALENDRONIC ACID) [Suspect]
     Indication: OSTEOPOROSIS PROPHYLAXIS
     Dosage: 70 MG, WEEKLY, ORAL
     Route: 048
     Dates: end: 20090812

REACTIONS (1)
  - GASTRIC ULCER HAEMORRHAGE [None]
